FAERS Safety Report 7047299-3 (Version None)
Quarter: 2010Q4

REPORT INFORMATION
  Report Type: 
  Country: None (occurrence: None)
  Receive Date: 20101015
  Receipt Date: 20101001
  Transmission Date: 20110411
  Serious: Yes (Other)
  Sender: FDA-Public Use
  Company Number: PHHY2010ZA66164

PATIENT
  Sex: Male

DRUGS (4)
  1. DIOVAN HCT [Suspect]
     Dosage: 160/25 MG TABLETS, UNK
  2. PLATO [Concomitant]
     Dosage: 100 (UNSPECIFIED UNITS), TWICE DAILY
  3. AMLOC [Concomitant]
     Dosage: 5 MG, UNK
  4. CARLOC [Concomitant]
     Dosage: 6.25 (UNSPECIFIED UNITS), BID

REACTIONS (1)
  - CEREBROVASCULAR ACCIDENT [None]
